FAERS Safety Report 9108307 (Version 3)
Quarter: 2013Q3

REPORT INFORMATION
  Report Type: Report from Study
  Country: SK (occurrence: SK)
  Receive Date: 20130222
  Receipt Date: 20130904
  Transmission Date: 20140515
  Serious: Yes (Death)
  Sender: FDA-Public Use
  Company Number: SK-ASTELLAS-2013EU001494

PATIENT
  Age: 56 Year
  Sex: Male
  Weight: 91.4 kg

DRUGS (11)
  1. BLINDED ENZALUTAMIDE [Suspect]
     Indication: PROSTATE CANCER
     Dosage: 160 MG, UID/QD
     Route: 048
     Dates: start: 20120404, end: 20121219
  2. KANAVIT                            /00032401/ [Concomitant]
     Indication: LIVER DISORDER
     Dosage: 15 UNK, TID
     Route: 048
     Dates: start: 20121119, end: 20121219
  3. TRITAZIDE [Concomitant]
     Indication: HYPERTENSION
     Dosage: UNK
     Route: 048
     Dates: start: 201006, end: 20121219
  4. VASOCARDIN [Concomitant]
     Indication: HYPERTENSION
     Dosage: 50 UNK, BID
     Route: 048
     Dates: start: 2008, end: 20121219
  5. IBALGIN                            /00109201/ [Concomitant]
     Indication: BONE PAIN
     Dosage: 400 MG, PRN
     Route: 048
     Dates: start: 201111, end: 20121219
  6. FLAVOBION [Concomitant]
     Indication: LIVER DISORDER
     Dosage: 70 MG, TID
     Route: 048
     Dates: start: 20120216, end: 20121219
  7. NOAX [Concomitant]
     Indication: BONE PAIN
     Dosage: 20 UNK, PRN
     Route: 048
     Dates: start: 20120612, end: 20121219
  8. MILURIT [Concomitant]
     Indication: HYPERURICAEMIA
     Dosage: 100 MG, BID
     Route: 048
     Dates: start: 201006, end: 20121119
  9. ELIGARD [Concomitant]
     Indication: PROSTATE CANCER
     Dosage: 45 MG, OTHER
     Route: 058
     Dates: start: 20091126, end: 20121219
  10. OCTAPLEX [Concomitant]
     Indication: COAGULOPATHY
     Dosage: 1000 U, UID/QD
     Route: 042
     Dates: start: 20121120, end: 20121120
  11. PLASMA [Concomitant]
     Indication: COAGULOPATHY
     Dosage: 150 ML, TID
     Route: 042
     Dates: start: 20121120, end: 20121120

REACTIONS (1)
  - Death [Fatal]
